FAERS Safety Report 9361817 (Version 1)
Quarter: 2013Q2

REPORT INFORMATION
  Report Type: Spontaneous
  Country: BR (occurrence: BR)
  Receive Date: 20130621
  Receipt Date: 20130621
  Transmission Date: 20140414
  Serious: Yes (Other)
  Sender: FDA-Public Use
  Company Number: BR-BRISTOL-MYERS SQUIBB COMPANY-19022748

PATIENT
  Age: 73 Year
  Sex: Female
  Weight: 88 kg

DRUGS (6)
  1. GLIFAGE [Suspect]
     Indication: DIABETES MELLITUS
     Dates: start: 2010
  2. DRAMIN [Interacting]
     Indication: DIZZINESS
  3. NEXIUM [Suspect]
     Indication: GASTRITIS
     Dosage: 80MG-2 IN 1 D-AUG 2012-MAR2013 (7 MONTHS).?40MG-1 IN 1 D
     Dates: start: 2011, end: 201303
  4. BUSCOPAN [Concomitant]
     Indication: DIVERTICULITIS
  5. LORAZEPAM [Concomitant]
     Indication: SLEEP DISORDER
  6. TENORETIC [Concomitant]
     Indication: HYPERTENSION
     Dosage: 1/2 TABLET

REACTIONS (8)
  - Gastritis erosive [Unknown]
  - Dizziness [Recovered/Resolved]
  - Alopecia [Unknown]
  - Gastritis [Unknown]
  - Hypersensitivity [Unknown]
  - Application site discolouration [Recovered/Resolved]
  - Diarrhoea [Recovered/Resolved]
  - Drug interaction [Recovered/Resolved]
